FAERS Safety Report 7830962-1 (Version None)
Quarter: 2011Q4

REPORT INFORMATION
  Report Type: 
  Country: None (occurrence: None)
  Receive Date: 20111021
  Receipt Date: 20111018
  Transmission Date: 20120403
  Serious: Yes (Other)
  Sender: FDA-Public Use
  Company Number: US-AMGEN-USASP2011053855

PATIENT
  Age: 60 Year
  Sex: Female

DRUGS (1)
  1. ENBREL [Suspect]
     Indication: PSORIATIC ARTHROPATHY
     Dosage: 50 MG, QWK
     Dates: start: 20020101

REACTIONS (8)
  - LIVER FUNCTION TEST ABNORMAL [None]
  - PSORIATIC ARTHROPATHY [None]
  - DIARRHOEA [None]
  - ABDOMINAL PAIN LOWER [None]
  - OEDEMA PERIPHERAL [None]
  - VOMITING [None]
  - NAUSEA [None]
  - FALL [None]
